FAERS Safety Report 5880260-0 (Version None)
Quarter: 2008Q3

REPORT INFORMATION
  Report Type: 
  Country: None (occurrence: None)
  Receive Date: 20080912
  Receipt Date: 20080902
  Transmission Date: 20090109
  Serious: Yes (Other)
  Sender: FDA-Public Use
  Company Number: PHBS2008CA05589

PATIENT
  Age: 11 Month
  Sex: Male
  Weight: 15.9 kg

DRUGS (20)
  1. CYCLOSPORINE [Suspect]
     Indication: NEPHROTIC SYNDROME
     Dosage: 75 MG/M2, BID
  2. CYCLOSPORINE [Suspect]
     Dosage: 400 NG/ ML
  3. MYCOPHENOLATE MOFETIL [Concomitant]
     Dosage: 600 MG/M2, BID
  4. DEXAMETHASONE TAB [Concomitant]
  5. RITUXIMAB [Concomitant]
     Dosage: 375 MG/M2/DOSE
  6. CO-TRIMAZOLE [Concomitant]
  7. PREDNISOLONE [Concomitant]
     Indication: NEPHROTIC SYNDROME
     Dosage: 60 MG/M2, TID
  8. FUROSEMIDE [Concomitant]
     Dosage: UP TO 8 MG/KG/DAY
  9. HYDROCHLOROTHIAZIDE [Concomitant]
     Dosage: 2.5-4.0 MG/KG/DAY
  10. SPIRONOLACTONE [Concomitant]
     Dosage: 2.0 MG/KG/DAY
  11. PENICILLIN V [Concomitant]
     Dosage: 50,000 U/KG/DAY
  12. ALBUMIN NOS [Concomitant]
     Dosage: UP TO 3 G/KG/DAY
  13. IMMUNOGLOBULINS [Concomitant]
     Dosage: 1 G, BID
     Route: 042
  14. LOSARTAN POTASSIUM [Concomitant]
     Indication: HYPERTENSION
     Dosage: UP TO 1.5 MG/KG/DAY
  15. RAMIPRIL [Concomitant]
     Indication: HYPERTENSION
     Dosage: 0.6 MG/KG/DAY
  16. AMLODIPINE [Concomitant]
     Indication: HYPERTENSION
     Dosage: 0.5 MG/KG/DAY
  17. MINOXIDIL [Concomitant]
     Indication: HYPERTENSION
     Dosage: 0.5 MG/KG/DAY
  18. LABETALOL HCL [Concomitant]
     Dosage: 1.5 MG/KG, TID
  19. NIFEDIPINE [Concomitant]
     Route: 060
  20. ENOXAPARIN SODIUM [Concomitant]
     Dosage: 0.5 MG/KG, Q12H
     Route: 058

REACTIONS (4)
  - HAEMOLYTIC URAEMIC SYNDROME [None]
  - NEPHROTIC SYNDROME [None]
  - PROTEINURIA [None]
  - PULMONARY EMBOLISM [None]
